FAERS Safety Report 6102853-8 (Version None)
Quarter: 2009Q1

REPORT INFORMATION
  Report Type: 
  Country: None (occurrence: None)
  Receive Date: 20090304
  Receipt Date: 20090224
  Transmission Date: 20090719
  Serious: Yes (Hospitalization, Other)
  Sender: FDA-Public Use
  Company Number: FR-AMGEN-UK261842

PATIENT
  Sex: Male

DRUGS (4)
  1. PANITUMUMAB [Suspect]
     Indication: SQUAMOUS CELL CARCINOMA
     Route: 042
     Dates: start: 20071231
  2. CISPLATIN [Concomitant]
     Route: 065
     Dates: start: 20071231
  3. FLUOROURACIL [Concomitant]
     Route: 065
     Dates: start: 20071231, end: 20080105
  4. LOXEN [Concomitant]
     Route: 065

REACTIONS (1)
  - EPILEPSY [None]
